FAERS Safety Report 10609905 (Version 3)
Quarter: 2015Q1

REPORT INFORMATION
  Report Type: Spontaneous
  Country: US (occurrence: None)
  Receive Date: 20141124
  Receipt Date: 20150106
  Transmission Date: 20150720
  Serious: Yes (Hospitalization, Other)
  Sender: FDA-Public Use
  Company Number: 2014-US-015107

PATIENT
  Age: 65 Year
  Sex: Female

DRUGS (3)
  1. XYREM [Suspect]
     Active Substance: SODIUM OXYBATE
     Route: 048
     Dates: start: 200612
  2. ARTANE [Suspect]
     Active Substance: TRIHEXYPHENIDYL HYDROCHLORIDE
     Indication: TARDIVE DYSKINESIA
  3. XYREM [Suspect]
     Active Substance: SODIUM OXYBATE
     Indication: NARCOLEPSY
     Route: 048
     Dates: start: 200612

REACTIONS (8)
  - Accidental overdose [None]
  - Dementia [None]
  - Rotator cuff syndrome [None]
  - Hospitalisation [None]
  - Tendon rupture [None]
  - Overdose [None]
  - Tardive dyskinesia [None]
  - Cognitive disorder [None]

NARRATIVE: CASE EVENT DATE: 201411
